FAERS Safety Report 24976178 (Version 1)
Quarter: 2025Q1

REPORT INFORMATION
  Report Type: Spontaneous
  Country: DE (occurrence: DE)
  Receive Date: 20250217
  Receipt Date: 20250217
  Transmission Date: 20250409
  Serious: Yes (Hospitalization)
  Sender: TERSERA THERAPEUTICS
  Company Number: DE-BAYER-2024A078743

PATIENT

DRUGS (10)
  1. GOSERELIN [Suspect]
     Active Substance: GOSERELIN
     Indication: Hormone-dependent prostate cancer
     Route: 030
     Dates: start: 20231128, end: 20240523
  2. GOSERELIN [Suspect]
     Active Substance: GOSERELIN
     Indication: Metastasis
     Route: 065
     Dates: start: 20240220
  3. ZOLADEX [Suspect]
     Active Substance: GOSERELIN ACETATE
     Indication: Hormone-dependent prostate cancer
     Route: 065
  4. ZOLADEX [Suspect]
     Active Substance: GOSERELIN ACETATE
     Indication: Metastasis
  5. NUBEQA [Suspect]
     Active Substance: DAROLUTAMIDE
     Indication: Hormone-dependent prostate cancer
     Route: 048
     Dates: start: 20230606, end: 20240523
  6. NUBEQA [Suspect]
     Active Substance: DAROLUTAMIDE
     Indication: Metastasis
     Route: 065
  7. DOCETAXEL [Suspect]
     Active Substance: DOCETAXEL
     Indication: Hormone-dependent prostate cancer
     Route: 042
     Dates: start: 20231219, end: 20240523
  8. DOCETAXEL [Suspect]
     Active Substance: DOCETAXEL
     Indication: Metastasis
     Route: 065
     Dates: start: 20240402
  9. UNSPECIFIED INGREDIENT [Concomitant]
     Active Substance: UNSPECIFIED INGREDIENT
     Indication: Product used for unknown indication
     Route: 065
  10. NITROGLYCERIN [Concomitant]
     Active Substance: NITROGLYCERIN
     Indication: Product used for unknown indication
     Route: 065

REACTIONS (1)
  - Generalised oedema [Recovered/Resolved]

NARRATIVE: CASE EVENT DATE: 20240523
